FAERS Safety Report 12012723 (Version 1)
Quarter: 2016Q1

REPORT INFORMATION
  Report Type: Spontaneous
  Country: US (occurrence: US)
  Receive Date: 20160205
  Receipt Date: 20160205
  Transmission Date: 20160526
  Serious: No
  Sender: FDA-Public Use
  Company Number: US-ELI_LILLY_AND_COMPANY-13145800

PATIENT
  Sex: Female
  Weight: 63.49 kg

DRUGS (1)
  1. CETUXIMAB [Suspect]
     Active Substance: CETUXIMAB
     Indication: PRODUCT USED FOR UNKNOWN INDICATION
     Dosage: UNK UNK, UNKNOWN
     Route: 061
     Dates: start: 200510, end: 200510

REACTIONS (3)
  - Maternal exposure during pregnancy [Unknown]
  - Occupational exposure to product [Unknown]
  - Paraesthesia [Unknown]

NARRATIVE: CASE EVENT DATE: 2005
